FAERS Safety Report 9382325 (Version 1)
Quarter: 2013Q3

REPORT INFORMATION
  Report Type: Spontaneous
  Country: US (occurrence: US)
  Receive Date: 20130703
  Receipt Date: 20130703
  Transmission Date: 20140515
  Serious: Yes (Other)
  Sender: FDA-Public Use
  Company Number: US-PFIZER INC-2013195924

PATIENT
  Age: 7 Decade
  Sex: Female
  Weight: 51.7 kg

DRUGS (1)
  1. CELEBREX [Suspect]
     Indication: PAIN
     Dosage: 100 MG, 1X/DAY
     Route: 048
     Dates: start: 201305, end: 20130630

REACTIONS (1)
  - Corneal dystrophy [Unknown]
